FAERS Safety Report 18530583 (Version 1)
Quarter: 2020Q4

REPORT INFORMATION
  Report Type: Spontaneous
  Country: ES (occurrence: ES)
  Receive Date: 20201121
  Receipt Date: 20201121
  Transmission Date: 20210114
  Serious: No
  Sender: FDA-Public Use
  Company Number: ES-LUPIN PHARMACEUTICALS INC.-2020-07622

PATIENT
  Age: 14 Year
  Sex: Male

DRUGS (5)
  1. CLOBETASOL [Suspect]
     Active Substance: CLOBETASOL
     Indication: KERATOSIS PILARIS
     Dosage: UNK, 0.05 PERCENT CREAM
     Route: 065
  2. NILOTINIB [Concomitant]
     Active Substance: NILOTINIB
     Dosage: UNK (RE-INITIATION)
     Route: 065
  3. DASATINIB. [Concomitant]
     Active Substance: DASATINIB
     Indication: CHRONIC MYELOID LEUKAEMIA
     Dosage: UNK
     Route: 065
  4. TRETINOIN. [Suspect]
     Active Substance: TRETINOIN
     Indication: KERATOSIS PILARIS
     Dosage: UNK
     Route: 065
  5. NILOTINIB [Concomitant]
     Active Substance: NILOTINIB
     Indication: CHRONIC MYELOID LEUKAEMIA
     Dosage: UNK (INITIAL TREATMENT STOPPED)
     Route: 065
     Dates: start: 201905, end: 201905

REACTIONS (1)
  - Therapy non-responder [Unknown]
